FAERS Safety Report 14401965 (Version 1)
Quarter: 2018Q1

REPORT INFORMATION
  Report Type: Spontaneous
  Country: JP (occurrence: JP)
  Receive Date: 20180117
  Receipt Date: 20180117
  Transmission Date: 20180509
  Serious: Yes (Hospitalization, Other)
  Sender: FDA-Public Use
  Company Number: JP-VISTAPHARM, INC.-VER201801-000070

PATIENT
  Age: 82 Year
  Sex: Female

DRUGS (5)
  1. QUETIAPINE. [Concomitant]
     Active Substance: QUETIAPINE
  2. QUETIAPINE. [Concomitant]
     Active Substance: QUETIAPINE
  3. DONEPEZIL. [Concomitant]
     Active Substance: DONEPEZIL
  4. VALPROIC ACID. [Suspect]
     Active Substance: VALPROIC ACID
     Indication: PRODUCT USED FOR UNKNOWN INDICATION
  5. DONEPEZIL. [Concomitant]
     Active Substance: DONEPEZIL

REACTIONS (3)
  - Hyperammonaemia [Unknown]
  - Carnitine deficiency [Recovered/Resolved]
  - Hypoglycaemic unconsciousness [Recovered/Resolved]
